FAERS Safety Report 21648104 (Version 2)
Quarter: 2023Q1

REPORT INFORMATION
  Report Type: Spontaneous
  Country: US (occurrence: US)
  Receive Date: 20221128
  Receipt Date: 20230203
  Transmission Date: 20230418
  Serious: No
  Sender: FDA-Public Use
  Company Number: US-ORGANON-O2211USA001963

PATIENT
  Age: 17 Year
  Sex: Female
  Weight: 47.166 kg

DRUGS (2)
  1. NEXPLANON [Suspect]
     Active Substance: ETONOGESTREL
     Indication: Muscle spasms
     Dosage: 1 LEFT (L) ARM IMPLANT
     Route: 059
     Dates: start: 20220902
  2. NEXPLANON [Suspect]
     Active Substance: ETONOGESTREL
     Indication: Contraception

REACTIONS (7)
  - Menometrorrhagia [Not Recovered/Not Resolved]
  - Heavy menstrual bleeding [Not Recovered/Not Resolved]
  - Abdominal pain upper [Not Recovered/Not Resolved]
  - Nausea [Not Recovered/Not Resolved]
  - Dizziness [Not Recovered/Not Resolved]
  - Drug ineffective for unapproved indication [Unknown]
  - Product use in unapproved indication [Unknown]

NARRATIVE: CASE EVENT DATE: 20220902
